FAERS Safety Report 14847419 (Version 6)
Quarter: 2018Q4

REPORT INFORMATION
  Report Type: Report from Study
  Country: SE (occurrence: SE)
  Receive Date: 20180504
  Receipt Date: 20181206
  Transmission Date: 20190204
  Serious: Yes (Hospitalization, Other)
  Sender: FDA-Public Use
  Company Number: SE-ACTELION-A-CH2018-166977

PATIENT
  Age: 70 Year
  Sex: Male
  Weight: 55 kg

DRUGS (18)
  1. UPTRAVI [Suspect]
     Active Substance: SELEXIPAG
     Dosage: 800 ?G, QD
     Route: 048
     Dates: start: 20171227, end: 20180102
  2. OMEPRAZOL [Concomitant]
     Active Substance: OMEPRAZOLE
     Indication: GASTRITIS
     Dosage: UNK
     Route: 048
  3. BUMETANIDA [Concomitant]
     Active Substance: BUMETANIDE
     Indication: DIURETIC THERAPY
     Dosage: UNK
     Route: 048
     Dates: start: 2016
  4. OPSUMIT [Suspect]
     Active Substance: MACITENTAN
     Indication: PULMONARY ARTERIAL HYPERTENSION
     Dosage: 10 MG, QD
     Route: 048
     Dates: start: 20171123
  5. TADALAFIL. [Concomitant]
     Active Substance: TADALAFIL
     Indication: PULMONARY ARTERIAL HYPERTENSION
     Dosage: 40 MG, QD
     Route: 048
     Dates: start: 20171130
  6. UPTRAVI [Suspect]
     Active Substance: SELEXIPAG
     Dosage: 1600 ?G, QD
     Route: 048
     Dates: start: 20180109, end: 20180116
  7. UPTRAVI [Suspect]
     Active Substance: SELEXIPAG
     Dosage: 2800 ?G, QD
     Route: 048
     Dates: start: 20180130, end: 20180206
  8. UPTRAVI [Suspect]
     Active Substance: SELEXIPAG
     Dosage: 3200 ?G, QD
     Route: 048
     Dates: start: 20180206
  9. USTEKINUMAB [Concomitant]
     Active Substance: USTEKINUMAB
     Indication: PSORIASIS
     Dosage: UNK
     Route: 058
     Dates: start: 2016
  10. METOPROLOL. [Concomitant]
     Active Substance: METOPROLOL
     Indication: ATRIAL FIBRILLATION
     Dosage: UNK
     Route: 048
     Dates: start: 2007, end: 20171219
  11. UPTRAVI [Suspect]
     Active Substance: SELEXIPAG
     Dosage: 1200 ?G, QD
     Route: 048
     Dates: start: 20180102, end: 20180109
  12. UPTRAVI [Suspect]
     Active Substance: SELEXIPAG
     Dosage: 2400 ?G, QD
     Route: 048
     Dates: start: 20180123, end: 20180130
  13. FINASTERID [Concomitant]
     Active Substance: FINASTERIDE
     Indication: PROSTATIC DISORDER
     Dosage: UNK
     Route: 048
     Dates: start: 2015
  14. APIXABAN [Concomitant]
     Active Substance: APIXABAN
     Indication: ANTICOAGULANT THERAPY
     Dosage: UNK
     Route: 048
     Dates: start: 2016
  15. UPTRAVI [Suspect]
     Active Substance: SELEXIPAG
     Indication: PULMONARY ARTERIAL HYPERTENSION
     Dosage: 400 ?G, QD
     Route: 048
     Dates: start: 20171220, end: 20171227
  16. UPTRAVI [Suspect]
     Active Substance: SELEXIPAG
     Dosage: 2000 ?G, QD
     Route: 048
     Dates: start: 20180116, end: 20180123
  17. SPIRONOLAKTON [Concomitant]
     Active Substance: SPIRONOLACTONE
     Indication: DIURETIC THERAPY
     Dosage: UNK
     Route: 048
     Dates: start: 2016
  18. SIMVASTATIN. [Concomitant]
     Active Substance: SIMVASTATIN
     Indication: HYPERLIPIDAEMIA
     Dosage: UNK
     Route: 048
     Dates: start: 2007

REACTIONS (15)
  - Chest pain [Unknown]
  - Abdominal distension [Unknown]
  - Oesophageal variceal ligation [Unknown]
  - Cough [Not Recovered/Not Resolved]
  - Abdominal cavity drainage [Unknown]
  - Dyspnoea [Recovered/Resolved]
  - Haemoglobin decreased [Recovered/Resolved with Sequelae]
  - Cholecystitis [Not Recovered/Not Resolved]
  - Ascites [Unknown]
  - Anaemia [Recovered/Resolved with Sequelae]
  - Transfusion [Unknown]
  - Oesophageal varices haemorrhage [Recovered/Resolved with Sequelae]
  - Weight decreased [Unknown]
  - Abdominal pain [Not Recovered/Not Resolved]
  - Colitis [Unknown]

NARRATIVE: CASE EVENT DATE: 20171227
